FAERS Safety Report 5482319-9 (Version None)
Quarter: 2007Q4

REPORT INFORMATION
  Report Type: 
  Country: None (occurrence: None)
  Receive Date: 20071011
  Receipt Date: 20071008
  Transmission Date: 20080405
  Serious: Yes (Hospitalization)
  Sender: FDA-Public Use
  Company Number: FR-WYE-G00443207

PATIENT
  Sex: Female
  Weight: 16 kg

DRUGS (2)
  1. ADVIL [Suspect]
     Route: 048
     Dates: start: 20070904, end: 20070905
  2. ACETAMINOPHEN [Concomitant]
     Route: 054
     Dates: start: 20070903, end: 20070903

REACTIONS (17)
  - BLOOD PRESSURE DECREASED [None]
  - BLOOD URINE PRESENT [None]
  - CARDIAC MURMUR [None]
  - HEADACHE [None]
  - HEART RATE INCREASED [None]
  - INCISION SITE COMPLICATION [None]
  - LYMPHADENOPATHY [None]
  - NITRITE URINE PRESENT [None]
  - PH URINE DECREASED [None]
  - PHARYNGOLARYNGEAL PAIN [None]
  - PROCEDURAL PAIN [None]
  - PROTEIN URINE PRESENT [None]
  - SCAR PAIN [None]
  - TONGUE DISORDER [None]
  - URINE KETONE BODY PRESENT [None]
  - VIRAL INFECTION [None]
  - WHITE BLOOD CELLS URINE POSITIVE [None]
